FAERS Safety Report 5908958-6 (Version None)
Quarter: 2008Q4

REPORT INFORMATION
  Report Type: 
  Country: None (occurrence: None)
  Receive Date: 20081006
  Receipt Date: 20080929
  Transmission Date: 20090506
  Serious: Yes (Death, Hospitalization, Other)
  Sender: FDA-Public Use
  Company Number: DE-AMGEN-UK299874

PATIENT
  Age: 80 Year
  Sex: Male
  Weight: 100 kg

DRUGS (12)
  1. ARANESP [Suspect]
     Indication: DIALYSIS
     Route: 065
     Dates: start: 20030929, end: 20080721
  2. BONDIOL [Concomitant]
     Route: 048
     Dates: start: 20030526
  3. VITARENAL [Concomitant]
     Route: 048
     Dates: start: 20040315
  4. ASPIRIN [Concomitant]
     Route: 048
     Dates: start: 20041108
  5. SIMVASTATIN [Concomitant]
     Route: 048
     Dates: start: 20050112
  6. ALLOPURINOL [Concomitant]
     Route: 048
     Dates: start: 20051226
  7. RAMIPRIL [Concomitant]
     Route: 048
     Dates: start: 20060710
  8. CALCIUM [Concomitant]
     Route: 048
     Dates: start: 20070314
  9. PENTOXIFYLLINE [Concomitant]
     Route: 048
     Dates: start: 20080604
  10. CARVEDILOL [Concomitant]
     Route: 048
     Dates: start: 20080721
  11. ISMN [Concomitant]
     Route: 048
     Dates: start: 20080723
  12. CORVATON - SLOW RELEASE [Concomitant]
     Route: 048
     Dates: start: 20080723

REACTIONS (8)
  - ACUTE CORONARY SYNDROME [None]
  - ANGINA UNSTABLE [None]
  - ATRIOVENTRICULAR BLOCK COMPLETE [None]
  - CARDIOGENIC SHOCK [None]
  - CORONARY ARTERY DISEASE [None]
  - HYPERKALAEMIA [None]
  - MYOCARDIAL INFARCTION [None]
  - PULMONARY OEDEMA [None]
